FAERS Safety Report 13974283 (Version 3)
Quarter: 2018Q3

REPORT INFORMATION
  Report Type: Spontaneous
  Country: CO (occurrence: CO)
  Receive Date: 20170915
  Receipt Date: 20180906
  Transmission Date: 20181010
  Serious: Yes (Hospitalization, Other)
  Sender: FDA-Public Use
  Company Number: CO-PFIZER INC-2017396624

PATIENT
  Age: 4 Year
  Sex: Female

DRUGS (2)
  1. GENOTROPIN [Suspect]
     Active Substance: SOMATROPIN
     Dosage: UNK MG, UNK
     Route: 058
     Dates: start: 2016, end: 201706
  2. GENOTROPIN [Suspect]
     Active Substance: SOMATROPIN
     Dosage: UNK MG, UNK
     Route: 058

REACTIONS (3)
  - Platelet count decreased [Unknown]
  - Bone marrow failure [Unknown]
  - Platelet disorder [Unknown]

NARRATIVE: CASE EVENT DATE: 2017
